FAERS Safety Report 6031174-7 (Version None)
Quarter: 2008Q4

REPORT INFORMATION
  Report Type: 
  Country: None (occurrence: None)
  Receive Date: 20081224
  Receipt Date: 20080513
  Transmission Date: 20090506
  Serious: Yes (Other)
  Sender: FDA-Public Use
  Company Number: 20080135  /

PATIENT
  Age: 27 Year
  Sex: Female
  Weight: 63.05 kg

DRUGS (5)
  1. VENOFER [Suspect]
     Indication: SERUM FERRITIN DECREASED
     Dosage: 400 MG/250 ML NSS/60; MIN. INTRAVENOUS
     Route: 042
     Dates: start: 20080319, end: 20080319
  2. TRIPHASIL-21 [Concomitant]
  3. VITAMIN B12 MONTHLY [Concomitant]
  4. FOLIC ACID [Concomitant]
  5. LOVAZA [Concomitant]

REACTIONS (1)
  - ANAPHYLACTOID REACTION [None]
